FAERS Safety Report 4943411-8 (Version None)
Quarter: 2006Q1

REPORT INFORMATION
  Report Type: 
  Country: None (occurrence: None)
  Receive Date: 20060309
  Receipt Date: 20060227
  Transmission Date: 20060701
  Serious: Yes (Hospitalization)
  Sender: FDA-Public Use
  Company Number: 2006030868

PATIENT
  Age: 16 Year
  Sex: Female

DRUGS (1)
  1. ROGAINE [Suspect]
     Dosage: TOPICAL
     Route: 061

REACTIONS (1)
  - THROMBOCYTOPENIA [None]
